FAERS Safety Report 6947074-1 (Version None)
Quarter: 2010Q3

REPORT INFORMATION
  Report Type: 
  Country: None (occurrence: None)
  Receive Date: 20100827
  Receipt Date: 20090825
  Transmission Date: 20110219
  Serious: No
  Sender: FDA-Public Use
  Company Number: US-ABBOTT-09P-163-0594617-00

PATIENT
  Sex: Female
  Weight: 148.91 kg

DRUGS (9)
  1. NIASPAN [Suspect]
     Indication: BLOOD CHOLESTEROL INCREASED
     Dates: start: 20090601
  2. SIMVASTATIN [Concomitant]
     Indication: PRODUCT USED FOR UNKNOWN INDICATION
  3. FISH OIL [Concomitant]
     Indication: PRODUCT USED FOR UNKNOWN INDICATION
     Dosage: 3-4 PILLS DAILY
  4. ASPIRIN [Concomitant]
     Indication: PROPHYLAXIS
     Dates: start: 20090601
  5. ASPIRIN [Concomitant]
     Indication: PRODUCT USED FOR UNKNOWN INDICATION
     Dates: start: 19990101
  6. CALCIUM CAPSULE WITH VITAMIN D [Concomitant]
     Indication: PRODUCT USED FOR UNKNOWN INDICATION
     Dates: start: 19990101
  7. MAGNESZIUM/ZINC/CALCIUM [Concomitant]
     Indication: MINERAL SUPPLEMENTATION
     Dates: start: 19990101
  8. MULTIVITAMIN [Concomitant]
     Indication: EYE DISORDER
  9. MULTIVITAMIN [Concomitant]
     Indication: PROPHYLAXIS

REACTIONS (9)
  - ABDOMINAL PAIN UPPER [None]
  - CRYING [None]
  - DRUG DOSE OMISSION [None]
  - GAIT DISTURBANCE [None]
  - MUSCULAR WEAKNESS [None]
  - NERVOUSNESS [None]
  - OEDEMA PERIPHERAL [None]
  - PANIC REACTION [None]
  - PRODUCTIVE COUGH [None]
